FAERS Safety Report 8927314 (Version 1)
Quarter: 2012Q4

REPORT INFORMATION
  Report Type: 
  Country: TW (occurrence: TW)
  Receive Date: 20121127
  Receipt Date: 20121127
  Transmission Date: 20130627
  Serious: Yes (Other)
  Sender: FDA-Public Use
  Company Number: TW-ROCHE-1159704

PATIENT
  Sex: Male

DRUGS (1)
  1. CLONAZEPAM [Suspect]
     Indication: TREMOR
     Dosage: for 7 days
     Route: 065

REACTIONS (1)
  - Dermatitis bullous [Recovered/Resolved]
